FAERS Safety Report 5588936-X (Version None)
Quarter: 2007Q4

REPORT INFORMATION
  Report Type: 
  Country: None (occurrence: None)
  Receive Date: 20071212
  Receipt Date: 20070927
  Transmission Date: 20080405
  Serious: No
  Sender: FDA-Public Use
  Company Number: 2007RL000429

PATIENT
  Age: 65 Year
  Sex: Female
  Weight: 59.8748 kg

DRUGS (3)
  1. LOVAZA [Suspect]
     Indication: BLOOD CHOLESTEROL INCREASED
     Dosage: 4 GM;QD
     Dates: start: 20070601
  2. TOPROL-XL [Suspect]
     Indication: BLOOD PRESSURE
  3. FLAXSEED OIL [Concomitant]

REACTIONS (2)
  - OFF LABEL USE [None]
  - WEIGHT INCREASED [None]
